FAERS Safety Report 8818589 (Version 2)
Quarter: 2013Q1

REPORT INFORMATION
  Report Type: Report from Study
  Country: PT (occurrence: PT)
  Receive Date: 20121001
  Receipt Date: 20130103
  Transmission Date: 20140127
  Serious: Yes (Other)
  Sender: FDA-Public Use
  Company Number: PT-ROCHE-1139126

PATIENT
  Sex: 0

DRUGS (1)
  1. RANIBIZUMAB [Suspect]
     Indication: AGE-RELATED MACULAR DEGENERATION
     Route: 050

REACTIONS (1)
  - Retinal pigment epithelial tear [Unknown]
